FAERS Safety Report 4317100-7 (Version None)
Quarter: 2004Q1

REPORT INFORMATION
  Report Type: 
  Country: None (occurrence: None)
  Receive Date: 20040312
  Receipt Date: 20040302
  Transmission Date: 20041129
  Serious: Yes (Hospitalization, Other)
  Sender: FDA-Public Use
  Company Number: 2004201959GB

PATIENT
  Age: 36 Year
  Sex: Male
  Weight: 82 kg

DRUGS (3)
  1. CELEBREX [Suspect]
     Indication: BACK PAIN
     Dosage: 1-2 DF BID, PRN, ORAL
     Route: 048
     Dates: start: 20031003, end: 20031201
  2. DIHYDROCODEINE (DIHYDROCODEINE) [Concomitant]
  3. TRAMADOL HCL [Concomitant]

REACTIONS (1)
  - DYSTONIA [None]
